FAERS Safety Report 6784113-5 (Version None)
Quarter: 2010Q2

REPORT INFORMATION
  Report Type: 
  Country: None (occurrence: None)
  Receive Date: 20100520
  Receipt Date: 20091109
  Transmission Date: 20101027
  Serious: Yes (Other)
  Sender: FDA-Public Use
  Company Number: 2008056629

PATIENT
  Age: 67 Year
  Sex: Female
  Weight: 96 kg

DRUGS (5)
  1. PROVERA [Suspect]
     Indication: HORMONE REPLACEMENT THERAPY
     Dosage: ORAL
     Route: 048
     Dates: start: 19931129, end: 20010813
  2. ESTRACE [Suspect]
     Indication: HORMONE REPLACEMENT THERAPY
     Dates: start: 19931129, end: 20010813
  3. FEMHRT [Suspect]
     Indication: HORMONE REPLACEMENT THERAPY
  4. TEVETEN [Concomitant]
  5. LOVASTATIN [Concomitant]

REACTIONS (1)
  - BREAST CANCER FEMALE [None]
